FAERS Safety Report 19310273 (Version 1)
Quarter: 2021Q2

REPORT INFORMATION
  Report Type: Spontaneous
  Country: GB (occurrence: GB)
  Receive Date: 20210526
  Receipt Date: 20210526
  Transmission Date: 20210717
  Serious: Yes (Other)
  Sender: FDA-Public Use
  Company Number: GB-PFIZER INC-2021546778

PATIENT
  Age: 37 Year
  Sex: Male
  Weight: 80 kg

DRUGS (3)
  1. DEPO?MEDRONE [Suspect]
     Active Substance: METHYLPREDNISOLONE
  2. ASTRAZENECA COVID?19 VACCINE [Suspect]
     Active Substance: AZD-1222
     Dosage: DOSE 1
     Dates: start: 20210429
  3. MOMETASONE FUROATE. [Concomitant]
     Active Substance: MOMETASONE FUROATE
     Indication: SINUSITIS
     Dates: start: 202105

REACTIONS (4)
  - Dizziness [Not Recovered/Not Resolved]
  - Sinus headache [Not Recovered/Not Resolved]
  - Headache [Not Recovered/Not Resolved]
  - Fatigue [Not Recovered/Not Resolved]

NARRATIVE: CASE EVENT DATE: 20210430
